FAERS Safety Report 7305874-2 (Version None)
Quarter: 2011Q1

REPORT INFORMATION
  Report Type: 
  Country: None (occurrence: None)
  Receive Date: 20110222
  Receipt Date: 20110216
  Transmission Date: 20110831
  Serious: Yes (Hospitalization, Other)
  Sender: FDA-Public Use
  Company Number: US-BRISTOL-MYERS SQUIBB COMPANY-15554561

PATIENT

DRUGS (1)
  1. REYATAZ [Suspect]

REACTIONS (3)
  - HEPATITIS [None]
  - LOSS OF CONSCIOUSNESS [None]
  - PNEUMONIA [None]
